FAERS Safety Report 11801826 (Version 1)
Quarter: 2015Q4

REPORT INFORMATION
  Report Type: Spontaneous
  Country: US (occurrence: US)
  Receive Date: 20151204
  Receipt Date: 20151204
  Transmission Date: 20160305
  Serious: No
  Sender: FDA-Public Use
  Company Number: US-WATSON-2015-23389

PATIENT
  Age: 53 Year
  Sex: Female

DRUGS (5)
  1. CLONIDINE. [Suspect]
     Active Substance: CLONIDINE
     Indication: THYROID DISORDER
     Dosage: 0.1 MG/DAY
     Route: 062
     Dates: start: 20150814
  2. PROGESTERONE. [Concomitant]
     Active Substance: PROGESTERONE
     Indication: THYROID DISORDER
  3. ATENOLOL. [Concomitant]
     Active Substance: ATENOLOL
     Indication: THYROID DISORDER
  4. CLONIDINE. [Suspect]
     Active Substance: CLONIDINE
     Dosage: 0.1 MG/DAY UNK
     Route: 062
     Dates: start: 201412, end: 20150810
  5. ESTRADIOL. [Concomitant]
     Active Substance: ESTRADIOL
     Indication: THYROID DISORDER

REACTIONS (6)
  - Labelled drug-drug interaction medication error [Unknown]
  - Drug prescribing error [Unknown]
  - Headache [Recovered/Resolved]
  - Nausea [Recovered/Resolved]
  - Hypotension [Unknown]
  - Blood pressure increased [Recovered/Resolved]

NARRATIVE: CASE EVENT DATE: 20150813
